FAERS Safety Report 14917573 (Version 1)
Quarter: 2018Q2

REPORT INFORMATION
  Report Type: Report from Study
  Country: None (occurrence: GB)
  Receive Date: 20180521
  Receipt Date: 20180521
  Transmission Date: 20180711
  Serious: Yes (Other)
  Sender: FDA-Public Use
  Company Number: GB-ABBVIE-18K-167-2360413-00

PATIENT
  Age: 32 Year
  Sex: Female
  Weight: 89.8 kg

DRUGS (2)
  1. METHOTREXATE. [Concomitant]
     Active Substance: METHOTREXATE
     Indication: PRODUCT USED FOR UNKNOWN INDICATION
     Dates: start: 20160801, end: 20170712
  2. HUMIRA [Suspect]
     Active Substance: ADALIMUMAB
     Indication: PSORIASIS
     Route: 058
     Dates: start: 20160317, end: 20170712

REACTIONS (1)
  - Cervical dysplasia [Recovered/Resolved]

NARRATIVE: CASE EVENT DATE: 20170401
